FAERS Safety Report 6967985-0 (Version None)
Quarter: 2010Q3

REPORT INFORMATION
  Report Type: 
  Country: None (occurrence: None)
  Receive Date: 20100907
  Receipt Date: 20100831
  Transmission Date: 20110219
  Serious: Yes (Hospitalization)
  Sender: FDA-Public Use
  Company Number: A0870654A

PATIENT
  Age: 70 Year
  Sex: Female
  Weight: 96.8 kg

DRUGS (1)
  1. ADVAIR DISKUS 100/50 [Suspect]
     Indication: PRODUCT USED FOR UNKNOWN INDICATION
     Dosage: 2PUFF TWICE PER DAY
     Route: 055
     Dates: start: 20010101

REACTIONS (3)
  - CHEST PAIN [None]
  - DYSPNOEA [None]
  - OVERDOSE [None]
